FAERS Safety Report 11334065 (Version 1)
Quarter: 2015Q3

REPORT INFORMATION
  Report Type: Spontaneous
  Country: US (occurrence: US)
  Receive Date: 20150803
  Receipt Date: 20150803
  Transmission Date: 20151125
  Serious: No
  Sender: FDA-Public Use
  Company Number: US-SA-2015SA064901

PATIENT
  Age: 27 Year
  Sex: Male

DRUGS (2)
  1. AMBIEN [Suspect]
     Active Substance: ZOLPIDEM TARTRATE
     Indication: INSOMNIA
     Dosage: PRODUCT START DATE: 4 YEARS AGO
     Route: 048
  2. AMBIEN [Suspect]
     Active Substance: ZOLPIDEM TARTRATE
     Indication: INSOMNIA
     Dosage: PRODUCT END DATE: RECENTLY?FREQUENCY: AT BEDTIME
     Route: 048

REACTIONS (2)
  - Amnesia [Recovered/Resolved]
  - Illusion [Recovered/Resolved]
